FAERS Safety Report 11303911 (Version 1)
Quarter: 2015Q3

REPORT INFORMATION
  Report Type: Spontaneous
  Country: US (occurrence: US)
  Receive Date: 20150723
  Receipt Date: 20150723
  Transmission Date: 20151125
  Serious: No
  Sender: FDA-Public Use
  Company Number: US-JNJFOC-20140923010

PATIENT
  Age: 64 Year
  Sex: Female
  Weight: 43.09 kg

DRUGS (2)
  1. ZYRTEC [Suspect]
     Active Substance: CETIRIZINE HYDROCHLORIDE
     Indication: EYE SWELLING
     Dosage: 1-2 TABLETS ONCE A DAY
     Route: 048
  2. ZYRTEC [Suspect]
     Active Substance: CETIRIZINE HYDROCHLORIDE
     Indication: EYE PRURITUS
     Dosage: 1-2 TABLETS ONCE A DAY
     Route: 048

REACTIONS (4)
  - Product use issue [Unknown]
  - Extra dose administered [Unknown]
  - Drug effect decreased [Unknown]
  - Therapeutic response unexpected [Unknown]
